FAERS Safety Report 9189410 (Version 1)
Quarter: 2013Q1

REPORT INFORMATION
  Report Type: Spontaneous
  Country: US (occurrence: US)
  Receive Date: 20130326
  Receipt Date: 20130326
  Transmission Date: 20140127
  Serious: Yes (Other)
  Sender: FDA-Public Use
  Company Number: PHEH2013US006755

PATIENT
  Sex: Female
  Weight: 54.42 kg

DRUGS (3)
  1. GILENYA [Suspect]
     Indication: MULTIPLE SCLEROSIS
     Dosage: 0.5 MG, QD
     Route: 048
     Dates: start: 20110825
  2. SYNTHROID [Concomitant]
     Dosage: 100 UG, UNK
  3. VITAMIN D3 [Concomitant]
     Dosage: 2000 IU, QD
     Route: 048

REACTIONS (1)
  - Urinary incontinence [Unknown]
